FAERS Safety Report 23026751 (Version 2)
Quarter: 2023Q4

REPORT INFORMATION
  Report Type: Spontaneous
  Country: US (occurrence: US)
  Receive Date: 20231004
  Receipt Date: 20231215
  Transmission Date: 20240109
  Serious: No
  Sender: FDA-Public Use
  Company Number: US-GLAXOSMITHKLINE-US2023AMR135549

PATIENT
  Sex: Female

DRUGS (1)
  1. ZEJULA [Suspect]
     Active Substance: NIRAPARIB
     Indication: Metastases to abdominal cavity
     Dosage: 300 MG, QD

REACTIONS (3)
  - Asthenia [Unknown]
  - Pain [Unknown]
  - Tumour marker increased [Unknown]
